FAERS Safety Report 9397625 (Version 1)
Quarter: 2013Q3

REPORT INFORMATION
  Report Type: Spontaneous
  Country: US (occurrence: US)
  Receive Date: 20130712
  Receipt Date: 20130712
  Transmission Date: 20140515
  Serious: Yes (Other)
  Sender: FDA-Public Use
  Company Number: US-ELI_LILLY_AND_COMPANY-US201307001940

PATIENT
  Age: 56 Year
  Sex: Female

DRUGS (12)
  1. CYMBALTA [Suspect]
     Indication: MUSCULOSKELETAL PAIN
     Dosage: 60 MG, QD
     Dates: end: 201302
  2. CYMBALTA [Suspect]
     Indication: DEPRESSION
  3. PREDNISONE [Suspect]
     Dosage: 40 MG, QD
  4. PREDNISONE [Suspect]
     Dosage: 20 MG, QD
  5. LIPITOR [Concomitant]
     Dosage: 80 MG, UNK
  6. TRICOR                             /00499301/ [Concomitant]
  7. ATENOLOL [Concomitant]
  8. NORVASC [Concomitant]
  9. HYDROCHLOROTHIAZIDE [Concomitant]
  10. QUINAPRIL [Concomitant]
     Indication: HYPERTENSION
  11. SYNTHROID [Concomitant]
  12. AMBIEN [Concomitant]

REACTIONS (4)
  - Angioedema [Recovering/Resolving]
  - Urticaria [Recovering/Resolving]
  - Foot fracture [Unknown]
  - Wrong technique in drug usage process [Unknown]
